FAERS Safety Report 6003028-3 (Version None)
Quarter: 2008Q4

REPORT INFORMATION
  Report Type: 
  Country: None (occurrence: None)
  Receive Date: 20081212
  Receipt Date: 20081203
  Transmission Date: 20090506
  Serious: Yes (Disabling)
  Sender: FDA-Public Use
  Company Number: 2008-183378-NL

PATIENT
  Age: 73 Year
  Sex: Male

DRUGS (11)
  1. ROCURONIUM BROMIDE [Suspect]
     Indication: HYPOTONIA
     Dosage: 40 MG ONCE, INTRAVENOUS (NOS)
     Route: 042
     Dates: start: 20080907, end: 20080907
  2. THIAMYLAL SODIUM) [Suspect]
     Indication: ANAESTHESIA PROCEDURE
     Dosage: INTRAVENOUS (NOS)
     Route: 042
     Dates: start: 20080907, end: 20080907
  3. FENTANYL CITRATE [Suspect]
     Indication: ANAESTHESIA PROCEDURE
     Dosage: 0.5 ML BID, INTRAVENOUS (NOS)
     Route: 042
     Dates: start: 20080907, end: 20080907
  4. DROPERIDOL [Suspect]
     Indication: ANAESTHESIA PROCEDURE
     Dosage: INTRAVENOUS (NOS)
     Route: 042
     Dates: start: 20080907, end: 20080907
  5. REMIFENTANIL HYDROCHLORIDE [Suspect]
     Indication: ANAESTHESIA PROCEDURE
     Dosage: INTRAVENOUS (NOS)
     Route: 042
     Dates: start: 20080907, end: 20080907
  6. PHENYLEPHRINE HYDROCHLORIDE [Suspect]
     Indication: ANAESTHESIA PROCEDURE
     Dosage: 0.1 G TID, INTRAVENOUS (NOS)
     Route: 042
     Dates: start: 20080907, end: 20080907
  7. PIMOZIDE [Concomitant]
  8. BIPERIDEN HYDROCHLORIDE TAB [Concomitant]
  9. LORAZEPAM [Concomitant]
  10. BROTIZOLAM [Concomitant]
  11. SODIUM PICOSULFATE [Concomitant]

REACTIONS (2)
  - RESPIRATORY DISORDER [None]
  - RHABDOMYOLYSIS [None]
